FAERS Safety Report 4794486-0 (Version None)
Quarter: 2005Q4

REPORT INFORMATION
  Report Type: 
  Country: None (occurrence: None)
  Receive Date: 20051011
  Receipt Date: 20050921
  Transmission Date: 20060501
  Serious: Yes (Other)
  Sender: FDA-Public Use
  Company Number: 200518308GDDC

PATIENT
  Age: 53 Year
  Sex: Female

DRUGS (8)
  1. TELFAST [Suspect]
     Indication: SWELLING FACE
     Dosage: DOSE: 1 DOSE FORM
     Route: 048
  2. DIOVAN HCT [Concomitant]
  3. COMBIVENT [Concomitant]
  4. FLIXONASE [Concomitant]
  5. ISTIN [Concomitant]
  6. LIPITOR [Concomitant]
  7. PROTIUM [Concomitant]
  8. SERETIDE 250 [Concomitant]

REACTIONS (1)
  - ARRHYTHMIA [None]
